FAERS Safety Report 5106636-7 (Version None)
Quarter: 2006Q3

REPORT INFORMATION
  Report Type: 
  Country: None (occurrence: None)
  Receive Date: 20060731
  Receipt Date: 20050714
  Transmission Date: 20061208
  Serious: Yes (Other)
  Sender: FDA-Public Use
  Company Number: US-JNJFOC-20050703159

PATIENT
  Age: 52 Year
  Sex: Female
  Weight: 72.1219 kg

DRUGS (3)
  1. RISPERDAL [Suspect]
     Indication: BIPOLAR DISORDER
     Dosage: 0.5 MG , 2 IN 1 DAY , ORAL
     Route: 048
     Dates: start: 20020401, end: 20020801
  2. LAMICTAL [Concomitant]
  3. LEVOXYL (TABLET ) LEVOTHYROXINE SODIUM [Concomitant]

REACTIONS (8)
  - CHROMATURIA [None]
  - INSOMNIA [None]
  - NERVOUSNESS [None]
  - OBSESSIVE-COMPULSIVE DISORDER [None]
  - POST-TRAUMATIC STRESS DISORDER [None]
  - SUICIDAL IDEATION [None]
  - TREMOR [None]
  - WEIGHT INCREASED [None]
